FAERS Safety Report 9504597 (Version 1)
Quarter: 2013Q3

REPORT INFORMATION
  Report Type: Spontaneous
  Country: US (occurrence: US)
  Receive Date: 20130906
  Receipt Date: 20130906
  Transmission Date: 20140515
  Serious: No
  Sender: FDA-Public Use
  Company Number: US-B.I. PHARMACEUTICALS,INC./RIDGEFIELD-2013-BI-26415BP

PATIENT
  Age: 68 Year
  Sex: Female
  Weight: 104 kg

DRUGS (8)
  1. PRADAXA [Suspect]
     Indication: CEREBROVASCULAR ACCIDENT PROPHYLAXIS
     Dosage: 300 MG
     Route: 048
     Dates: start: 20120220
  2. PRADAXA [Suspect]
     Indication: ATRIAL FIBRILLATION
  3. METFORMIN [Concomitant]
     Indication: DIABETES MELLITUS
     Route: 048
  4. LANTIS [Concomitant]
     Indication: DIABETES MELLITUS
     Dosage: 15 U
     Route: 058
  5. GLIMEPIRIDE [Concomitant]
     Indication: DIABETES MELLITUS
  6. HUMULIN [Concomitant]
     Indication: DIABETES MELLITUS
     Dosage: 16 U
     Route: 058
  7. LISINOPRIL [Concomitant]
     Indication: HYPERTENSION
  8. WARFARIN [Concomitant]
     Dates: start: 201201, end: 20120220

REACTIONS (1)
  - Fluid overload [Recovered/Resolved]
